FAERS Safety Report 4413426-7 (Version None)
Quarter: 2004Q3

REPORT INFORMATION
  Report Type: 
  Country: None (occurrence: None)
  Receive Date: 20040728
  Receipt Date: 20040716
  Transmission Date: 20050211
  Serious: Yes (Hospitalization)
  Sender: FDA-Public Use
  Company Number: STA-AE-04-MTX-313

PATIENT
  Sex: Male

DRUGS (2)
  1. METHOTREXATE [Suspect]
  2. ENBREL [Suspect]
     Indication: WEGENER'S GRANULOMATOSIS
     Dosage: 25 MG 2X PER 1 WK, SC
     Route: 058

REACTIONS (5)
  - CONDITION AGGRAVATED [None]
  - EYE SWELLING [None]
  - LARYNGEAL STENOSIS [None]
  - VIRAL INFECTION [None]
  - WEGENER'S GRANULOMATOSIS [None]
